FAERS Safety Report 18993239 (Version 4)
Quarter: 2022Q1

REPORT INFORMATION
  Report Type: Spontaneous
  Country: US (occurrence: US)
  Receive Date: 20210310
  Receipt Date: 20220217
  Transmission Date: 20220423
  Serious: Yes (Other)
  Sender: FDA-Public Use
  Company Number: US-GLAUKOS-AVE-2021-0058-AE

PATIENT
  Age: 16 Year
  Sex: Male

DRUGS (8)
  1. PHOTREXA VISCOUS [Suspect]
     Active Substance: RIBOFLAVIN 5^-PHOSPHATE SODIUM
     Indication: Keratoconus
     Dosage: 16 MINUTES
     Route: 047
     Dates: start: 20210219, end: 20210219
  2. PHOTREXA [Suspect]
     Active Substance: RIBOFLAVIN 5^-PHOSPHATE SODIUM
     Indication: Keratoconus
     Dosage: 14 MINUTES
     Route: 047
     Dates: start: 20210219, end: 20210219
  3. DEVICE [Suspect]
     Active Substance: DEVICE
     Indication: Keratoconus
     Route: 047
     Dates: start: 20210219, end: 20210219
  4. PROPARACAINE [Concomitant]
     Active Substance: PROPARACAINE
     Indication: Product used for unknown indication
     Dosage: DILUTED AND AS NEEDED
     Route: 047
     Dates: start: 20210219
  5. DEVICE [Concomitant]
     Active Substance: DEVICE
     Indication: Product used for unknown indication
     Dates: start: 20210219
  6. UNSPECIFIED INGREDIENT [Concomitant]
     Active Substance: UNSPECIFIED INGREDIENT
     Indication: Product used for unknown indication
     Route: 047
     Dates: start: 20210219
  7. UNSPECIFIED INGREDIENT [Concomitant]
     Active Substance: UNSPECIFIED INGREDIENT
     Indication: Product used for unknown indication
     Route: 047
     Dates: start: 20210219
  8. Unspecified artificial tears [Concomitant]
     Indication: Product used for unknown indication
     Route: 047
     Dates: start: 20210219

REACTIONS (6)
  - Corneal transplant [Unknown]
  - Corneal infiltrates [Unknown]
  - Staphylococcal infection [Unknown]
  - Ulcerative keratitis [Unknown]
  - Inappropriate schedule of product administration [Unknown]
  - Eye pain [Unknown]

NARRATIVE: CASE EVENT DATE: 20210219
